FAERS Safety Report 11359334 (Version 2)
Quarter: 2015Q3

REPORT INFORMATION
  Report Type: Report from Study
  Country: JP (occurrence: JP)
  Receive Date: 20150807
  Receipt Date: 20150808
  Transmission Date: 20151125
  Serious: Yes (Hospitalization, Other)
  Sender: FDA-Public Use
  Company Number: JP-SPECTRUM PHARMACEUTICALS, INC.-15-Z-JP-00331

PATIENT
  Age: 49 Year
  Sex: Female

DRUGS (4)
  1. RITUXIMAB [Suspect]
     Active Substance: RITUXIMAB
     Indication: FOLLICLE CENTRE LYMPHOMA, FOLLICULAR GRADE I, II, III STAGE IV
     Dosage: 250 MG/M2, SINGLE
     Route: 042
     Dates: start: 20081217, end: 20081217
  2. ZEVALIN [Suspect]
     Active Substance: IBRITUMOMAB TIUXETAN
     Indication: FOLLICLE CENTRE LYMPHOMA, FOLLICULAR GRADE I, II, III STAGE IV
     Dosage: 1184 MBQ, SINGLE
     Route: 042
     Dates: start: 20081217, end: 20081217
  3. ZEVALIN [Suspect]
     Active Substance: IBRITUMOMAB TIUXETAN
     Dosage: 130 MBQ, SINGLE
     Route: 042
     Dates: start: 20081210, end: 20081210
  4. RITUXIMAB [Suspect]
     Active Substance: RITUXIMAB
     Dosage: 250 MG/M2, SINGLE
     Route: 042
     Dates: start: 20081210, end: 20081210

REACTIONS (1)
  - Cervix carcinoma [Recovering/Resolving]

NARRATIVE: CASE EVENT DATE: 20150304
